FAERS Safety Report 8833278 (Version 3)
Quarter: 2012Q4

REPORT INFORMATION
  Report Type: Report from Study
  Country: US (occurrence: US)
  Receive Date: 20121010
  Receipt Date: 20121218
  Transmission Date: 20130627
  Serious: Yes (Other)
  Sender: FDA-Public Use
  Company Number: US-ABBOTT-12P-163-0991219-00

PATIENT
  Age: 62 None
  Sex: Female
  Weight: 97.16 kg

DRUGS (27)
  1. HUMIRA [Suspect]
     Indication: PSORIATIC ARTHROPATHY
     Dates: start: 2011
  2. HUMIRA [Suspect]
     Indication: PSORIASIS
     Dates: start: 20121123
  3. METHOTREXATE [Suspect]
     Indication: PSORIATIC ARTHROPATHY
  4. METHOTREXATE [Suspect]
     Indication: PSORIASIS
  5. NEURONTIN [Concomitant]
     Indication: FIBROMYALGIA
  6. ZANAFLEX [Concomitant]
     Indication: MUSCLE SPASMS
  7. AMARYL [Concomitant]
     Indication: DIABETES MELLITUS
  8. FISH OIL [Concomitant]
     Indication: SUPPLEMENTATION THERAPY
  9. FOLIC ACID [Concomitant]
     Indication: VITAMIN SUPPLEMENTATION
  10. LOPRESSOR [Concomitant]
     Indication: HYPERTENSION
  11. XANAX [Concomitant]
     Indication: ANXIETY
  12. COZAAR [Concomitant]
     Indication: HYPERTENSION
  13. KLOR-CON [Concomitant]
     Indication: SUPPLEMENTATION THERAPY
  14. ACIPHEX [Concomitant]
     Indication: GASTROOESOPHAGEAL REFLUX DISEASE
  15. MIRALAX [Concomitant]
     Indication: CONSTIPATION
  16. PREDNISONE [Concomitant]
     Indication: PRODUCT USED FOR UNKNOWN INDICATION
  17. VITAMIN D [Concomitant]
     Indication: VITAMIN SUPPLEMENTATION
  18. LORATAB [Concomitant]
     Indication: PSORIATIC ARTHROPATHY
  19. MSCONTIN [Concomitant]
     Indication: PAIN
  20. MAGNESIUM [Concomitant]
     Indication: MINERAL SUPPLEMENTATION
  21. ZINC [Concomitant]
     Indication: SUPPLEMENTATION THERAPY
  22. ALAWAY [Concomitant]
     Indication: HYPERSENSITIVITY
     Route: 047
  23. GEN TEAL [Concomitant]
     Indication: DRY EYE
     Route: 047
  24. CPAP [Concomitant]
     Indication: SLEEP APNOEA SYNDROME
  25. TRAZODONE [Concomitant]
     Indication: PRODUCT USED FOR UNKNOWN INDICATION
     Dosage: bedtime
  26. SENOKOT [Concomitant]
     Indication: PRODUCT USED FOR UNKNOWN INDICATION
  27. TYLENOL [Concomitant]
     Indication: PRODUCT USED FOR UNKNOWN INDICATION

REACTIONS (23)
  - Chest discomfort [Recovered/Resolved]
  - Arthralgia [Not Recovered/Not Resolved]
  - Fungal infection [Not Recovered/Not Resolved]
  - Liver function test abnormal [Recovered/Resolved]
  - Chest pain [Recovered/Resolved]
  - Back pain [Recovered/Resolved]
  - Musculoskeletal pain [Recovered/Resolved]
  - Cholelithiasis [Recovered/Resolved]
  - Cholelithiasis [Recovered/Resolved]
  - Cholelithiasis [Recovered/Resolved]
  - Impaired healing [Not Recovered/Not Resolved]
  - Incision site erythema [Not Recovered/Not Resolved]
  - Pruritus [Not Recovered/Not Resolved]
  - Chills [Not Recovered/Not Resolved]
  - Procedural pain [Not Recovered/Not Resolved]
  - Blood sodium decreased [Unknown]
  - Blood chloride decreased [Unknown]
  - Lymphocyte count increased [Unknown]
  - Injection site erythema [Unknown]
  - Injection site bruising [Unknown]
  - Pain [Unknown]
  - Feeling cold [Unknown]
  - Fatigue [Unknown]
